FAERS Safety Report 9355250 (Version 2)
Quarter: 2013Q3

REPORT INFORMATION
  Report Type: Spontaneous
  Country: US (occurrence: US)
  Receive Date: 20130619
  Receipt Date: 20130718
  Transmission Date: 20140515
  Serious: No
  Sender: FDA-Public Use
  Company Number: US-PFIZER INC-2013182775

PATIENT
  Age: 67 Year
  Sex: Female

DRUGS (10)
  1. NEURONTIN [Suspect]
     Dosage: UNK
  2. ERYTHROMYCIN [Suspect]
     Dosage: UNK
  3. BACTRIM [Suspect]
     Dosage: UNK
  4. REGLAN [Suspect]
     Dosage: UNK
  5. MACRODANTIN [Suspect]
     Dosage: UNK
  6. CEFTIN [Suspect]
     Dosage: UNK
  7. ERYCIN [Suspect]
     Dosage: UNK
  8. ZANTAC [Suspect]
     Dosage: UNK
  9. NORGESIC FORTE [Suspect]
     Dosage: UNK
  10. TRILAFON [Suspect]
     Dosage: UNK

REACTIONS (1)
  - Drug hypersensitivity [Unknown]
